FAERS Safety Report 22640627 (Version 1)
Quarter: 2023Q2

REPORT INFORMATION
  Report Type: Spontaneous
  Country: FR (occurrence: None)
  Receive Date: 20230626
  Receipt Date: 20230626
  Transmission Date: 20230722
  Serious: Yes (Death)
  Sender: FDA-Public Use
  Company Number: 2023A144805

PATIENT
  Age: 32 Year
  Sex: Female

DRUGS (5)
  1. QUETIAPINE [Suspect]
     Active Substance: QUETIAPINE
  2. DIAZEPAM [Suspect]
     Active Substance: DIAZEPAM
  3. METHADONE [Suspect]
     Active Substance: METHADONE HYDROCHLORIDE
  4. COCAINE [Suspect]
     Active Substance: COCAINE
  5. CITALOPRAM [Suspect]
     Active Substance: CITALOPRAM HYDROBROMIDE

REACTIONS (1)
  - Death [Fatal]

NARRATIVE: CASE EVENT DATE: 20221201
